FAERS Safety Report 6207787-6 (Version None)
Quarter: 2009Q2

REPORT INFORMATION
  Report Type: 
  Country: None (occurrence: None)
  Receive Date: 20090522
  Receipt Date: 20090513
  Transmission Date: 20091009
  Serious: Yes (Death)
  Sender: FDA-Public Use
  Company Number: 2009SP010309

PATIENT
  Age: 57 Year
  Sex: Female

DRUGS (5)
  1. BETAMETHASONE [Suspect]
     Indication: DRUG HYPERSENSITIVITY
     Dosage: 5 MG;QD;PO; 0.5 MG;QD;PO
     Route: 048
     Dates: start: 20070307
  2. BETAMETHASONE [Suspect]
     Indication: DRUG HYPERSENSITIVITY
     Dosage: 5 MG;QD;PO; 0.5 MG;QD;PO
     Route: 048
     Dates: start: 20070529
  3. PREDNISOLONE [Suspect]
     Indication: DRUG RASH WITH EOSINOPHILIA AND SYSTEMIC SYMPTOMS
     Dosage: 50 MG; QD; PO
     Route: 048
     Dates: start: 20070101, end: 20070101
  4. SOLU-MEDROL [Concomitant]
  5. VENOGLOBULIN [Concomitant]

REACTIONS (7)
  - BLOOD PRESSURE DECREASED [None]
  - CARDIAC ENZYMES INCREASED [None]
  - ELECTROCARDIOGRAM ABNORMAL [None]
  - HEPATIC FUNCTION ABNORMAL [None]
  - MALAISE [None]
  - MYOCARDITIS [None]
  - VENTRICULAR TACHYCARDIA [None]
